FAERS Safety Report 23953421 (Version 2)
Quarter: 2024Q3

REPORT INFORMATION
  Report Type: Spontaneous
  Country: US (occurrence: US)
  Receive Date: 20240608
  Receipt Date: 20240725
  Transmission Date: 20241017
  Serious: Yes (Disabling, Other)
  Sender: AMGEN
  Company Number: US-AMGEN-USASP2024109790

PATIENT
  Age: 73 Year
  Sex: Male

DRUGS (22)
  1. TEPEZZA [Suspect]
     Active Substance: TEPROTUMUMAB-TRBW
     Indication: Endocrine ophthalmopathy
     Dosage: UNK
     Route: 042
     Dates: start: 202206
  2. TEPEZZA [Suspect]
     Active Substance: TEPROTUMUMAB-TRBW
     Indication: Graves^ disease
     Dosage: UNK (CYCLE 1 OF 8)
     Route: 042
     Dates: start: 20220624
  3. TEPEZZA [Suspect]
     Active Substance: TEPROTUMUMAB-TRBW
     Indication: Lung neoplasm malignant
     Dosage: UNK (CYCLE 3 OF 8)
     Route: 042
     Dates: start: 20221118
  4. TEPEZZA [Suspect]
     Active Substance: TEPROTUMUMAB-TRBW
     Indication: Exophthalmos
     Dosage: UNK (CYCLE 6 OF 8)
     Route: 042
     Dates: start: 20221202
  5. PROLIA [Suspect]
     Active Substance: DENOSUMAB
     Indication: Osteoporosis
     Dosage: UNK, Q6MO (CYCLE 1 OF 4,LAST DOSE WAS ON 16/FEB/2024)
     Route: 065
     Dates: start: 20220819
  6. DELTASONE [Concomitant]
     Active Substance: PREDNISONE
     Dosage: 20 MILLIGRAM
     Route: 048
     Dates: start: 20211027, end: 20220616
  7. DELTASONE [Concomitant]
     Active Substance: PREDNISONE
     Dosage: 50 MILLIGRAM
     Route: 048
  8. FOSAMAX [Concomitant]
     Active Substance: ALENDRONATE SODIUM
     Dosage: 70 MILLIGRAM, QWK
     Route: 048
     Dates: start: 20220310, end: 20230217
  9. PACERONE [Concomitant]
     Active Substance: AMIODARONE HYDROCHLORIDE
     Dosage: 100 MILLIGRAM, QD
     Route: 048
     Dates: end: 20230217
  10. ASPIRIN [Concomitant]
     Active Substance: ASPIRIN
     Dosage: 81 MILLIGRAM, QD
     Route: 048
  11. ZITHROMAX [Concomitant]
     Active Substance: AZITHROMYCIN DIHYDRATE
     Dosage: 250 MILLIGRAM
     Route: 048
     Dates: start: 20220614, end: 20230217
  12. LOTENSIN [Concomitant]
     Active Substance: BENAZEPRIL HYDROCHLORIDE
     Dosage: 5 MILLIGRAM, QD
     Route: 048
     Dates: end: 20230217
  13. PLAVIX [Concomitant]
     Active Substance: CLOPIDOGREL BISULFATE
     Dosage: 75 MILLIGRAM
     Route: 048
     Dates: start: 20220205, end: 20230207
  14. LASIX [Concomitant]
     Active Substance: FUROSEMIDE
     Dosage: 40 MILLIGRAM, QD
     Route: 048
     Dates: start: 20211026
  15. MUCINEX DM [Concomitant]
     Active Substance: DEXTROMETHORPHAN HYDROBROMIDE\GUAIFENESIN
     Dosage: 300 MILLIGRAM, BID
     Route: 048
     Dates: start: 20220616, end: 20230217
  16. MUCINEX DM [Concomitant]
     Active Substance: DEXTROMETHORPHAN HYDROBROMIDE\GUAIFENESIN
     Dosage: 600 MILLIGRAM, BID
     Route: 048
     Dates: start: 20220616, end: 20230217
  17. TAPAZOLE [Concomitant]
     Active Substance: METHIMAZOLE
     Dosage: 10 MILLIGRAM
     Route: 048
     Dates: start: 20220124
  18. TOPROL XL [Concomitant]
     Active Substance: METOPROLOL SUCCINATE
     Dosage: 25 MILLIGRAM, QD
     Route: 048
     Dates: end: 20230130
  19. LOPRESSOR [Concomitant]
     Active Substance: METOPROLOL TARTRATE
     Dosage: 25 MILLIGRAM
     Route: 048
     Dates: start: 20211106, end: 20230128
  20. CRESTOR [Concomitant]
     Active Substance: ROSUVASTATIN CALCIUM
     Dosage: 40 MILLIGRAM, QD
     Route: 048
  21. CHOLECALCIFEROL [Concomitant]
     Active Substance: CHOLECALCIFEROL
     Dosage: UNK UNK, QD
     Route: 048
  22. ALPHAGAN P [Concomitant]
     Active Substance: BRIMONIDINE TARTRATE
     Dosage: 0.1 PERCENT, BID (1 DROP INTO BOTH EYES)
     Route: 047

REACTIONS (25)
  - Deafness permanent [Not Recovered/Not Resolved]
  - Endocrine ophthalmopathy [Unknown]
  - Graves^ disease [Recovering/Resolving]
  - Physical disability [Unknown]
  - Impaired quality of life [Unknown]
  - Emotional distress [Unknown]
  - Physical product label issue [Unknown]
  - Discomfort [Unknown]
  - Chills [Unknown]
  - Eye swelling [Recovering/Resolving]
  - Ocular hyperaemia [Recovering/Resolving]
  - Red cell distribution width increased [Unknown]
  - Blood urea increased [Unknown]
  - White blood cell count increased [Unknown]
  - Neutrophil count increased [Unknown]
  - Monocyte count increased [Unknown]
  - Blood potassium increased [Unknown]
  - Lymphocyte count decreased [Unknown]
  - Blood chloride increased [Unknown]
  - Blood calcium increased [Unknown]
  - Cough [Unknown]
  - Anxiety [Unknown]
  - Pain [Unknown]
  - Tinnitus [Not Recovered/Not Resolved]
  - Blood glucose increased [Unknown]

NARRATIVE: CASE EVENT DATE: 20220714
